FAERS Safety Report 12139706 (Version 3)
Quarter: 2016Q1

REPORT INFORMATION
  Report Type: Report from Study
  Country: BR (occurrence: BR)
  Receive Date: 20160303
  Receipt Date: 20160310
  Transmission Date: 20160526
  Serious: Yes (Life-Threatening, Other)
  Sender: FDA-Public Use
  Company Number: BR-ABBVIE-16K-020-1569811-00

PATIENT
  Age: 50 Year
  Sex: Female
  Weight: 71 kg

DRUGS (9)
  1. HUMIRA [Suspect]
     Active Substance: ADALIMUMAB
     Indication: CROHN^S DISEASE
     Route: 058
     Dates: start: 2010, end: 2010
  2. HUMIRA [Suspect]
     Active Substance: ADALIMUMAB
     Dosage: LOADING DOSE
     Route: 058
     Dates: start: 20150316, end: 20150316
  3. RIVOTRIL [Concomitant]
     Active Substance: CLONAZEPAM
     Indication: PRODUCT USED FOR UNKNOWN INDICATION
  4. HUMIRA [Suspect]
     Active Substance: ADALIMUMAB
     Dosage: LOADING DOSE
     Route: 058
     Dates: start: 20150302, end: 20150302
  5. HUMIRA [Suspect]
     Active Substance: ADALIMUMAB
     Dosage: LOADING DOSE
     Route: 058
     Dates: start: 20150218, end: 20150218
  6. AZATHIOPRINE. [Concomitant]
     Active Substance: AZATHIOPRINE
     Indication: PRODUCT USED FOR UNKNOWN INDICATION
  7. HUMIRA [Suspect]
     Active Substance: ADALIMUMAB
     Dosage: MAINTAINCE DOSE
     Route: 058
  8. INFLIXIMAB [Suspect]
     Active Substance: INFLIXIMAB
     Indication: PRODUCT USED FOR UNKNOWN INDICATION
     Route: 065
  9. CARBAMAZEPINE. [Concomitant]
     Active Substance: CARBAMAZEPINE
     Indication: PRODUCT USED FOR UNKNOWN INDICATION

REACTIONS (42)
  - Suicide attempt [Unknown]
  - Small intestinal resection [Unknown]
  - Crohn^s disease [Unknown]
  - Inappropriate schedule of drug administration [Recovered/Resolved]
  - Bone disorder [Unknown]
  - Abdominal discomfort [Unknown]
  - Vessel puncture site reaction [Unknown]
  - Eating disorder [Unknown]
  - Paranoia [Unknown]
  - Pain [Unknown]
  - Gait disturbance [Unknown]
  - Hypoacusis [Unknown]
  - Limb discomfort [Unknown]
  - Hypotension [Unknown]
  - Depression [Not Recovered/Not Resolved]
  - Nervousness [Not Recovered/Not Resolved]
  - Anorectal operation [Unknown]
  - Rash macular [Unknown]
  - Headache [Not Recovered/Not Resolved]
  - Incorrect dose administered [Unknown]
  - Decreased activity [Unknown]
  - Diarrhoea [Unknown]
  - Abdominal pain [Unknown]
  - Arthralgia [Unknown]
  - Hypersensitivity [Unknown]
  - Stenosis [Unknown]
  - Bone pain [Unknown]
  - Haemorrhoid operation [Unknown]
  - Gastric infection [Unknown]
  - Incorrect dose administered [Not Recovered/Not Resolved]
  - Injection site pain [Unknown]
  - Peripheral swelling [Unknown]
  - Emotional disorder [Unknown]
  - Tuberculin test positive [Unknown]
  - Infection [Unknown]
  - Depressed mood [Not Recovered/Not Resolved]
  - Large intestine polyp [Unknown]
  - Malaise [Unknown]
  - Tremor [Unknown]
  - Dizziness [Unknown]
  - Crying [Not Recovered/Not Resolved]
  - Post procedural infection [Not Recovered/Not Resolved]

NARRATIVE: CASE EVENT DATE: 2010
